FAERS Safety Report 18560128 (Version 4)
Quarter: 2022Q1

REPORT INFORMATION
  Report Type: Report from Study
  Country: KR (occurrence: KR)
  Receive Date: 20201130
  Receipt Date: 20211115
  Transmission Date: 20220423
  Serious: Yes (Death, Life-Threatening, Hospitalization, Other)
  Sender: FDA-Public Use
  Company Number: KR-BRISTOL-MYERS SQUIBB COMPANY-BMS-2020-100810

PATIENT
  Age: 61 Year
  Sex: Male
  Weight: 37 kg

DRUGS (1)
  1. NIVOLUMAB [Suspect]
     Active Substance: NIVOLUMAB
     Indication: Non-small cell lung cancer
     Dosage: 3 MILLIGRAM/KILOGRAM, Q2WK
     Route: 041
     Dates: start: 20200625, end: 20200813

REACTIONS (2)
  - Pneumothorax [Fatal]
  - Pneumonia [Fatal]

NARRATIVE: CASE EVENT DATE: 20200801
